FAERS Safety Report 6094898-1 (Version None)
Quarter: 2009Q1

REPORT INFORMATION
  Report Type: 
  Country: None (occurrence: None)
  Receive Date: 20090227
  Receipt Date: 20090224
  Transmission Date: 20090719
  Serious: Yes (Disabling)
  Sender: FDA-Public Use
  Company Number: FR-SP-2009-00284

PATIENT
  Age: 62 Year
  Sex: Male
  Weight: 70 kg

DRUGS (3)
  1. IMMUCYST [Suspect]
     Indication: CARCINOMA IN SITU OF BLADDER
     Route: 043
     Dates: start: 20090106
  2. IMMUCYST [Suspect]
     Route: 043
     Dates: start: 20090106
  3. OFLOCET (OFLOXACIN) [Concomitant]
     Indication: PROPHYLAXIS
     Route: 048
     Dates: start: 20090106

REACTIONS (4)
  - DISSEMINATED TUBERCULOSIS [None]
  - HEPATITIS [None]
  - HYPERTHERMIA [None]
  - PAIN [None]
